FAERS Safety Report 14330524 (Version 2)
Quarter: 2018Q2

REPORT INFORMATION
  Report Type: Spontaneous
  Country: US (occurrence: US)
  Receive Date: 20171227
  Receipt Date: 20180422
  Transmission Date: 20180711
  Serious: No
  Sender: FDA-Public Use
  Company Number: US-BIOGEN-2017BI00501473

PATIENT
  Sex: Female

DRUGS (1)
  1. AVONEX [Suspect]
     Active Substance: INTERFERON BETA-1A
     Indication: MULTIPLE SCLEROSIS
     Route: 030

REACTIONS (8)
  - Influenza like illness [Unknown]
  - Depression [Unknown]
  - Neck injury [Unknown]
  - Fatigue [Unknown]
  - Pollakiuria [Unknown]
  - Back pain [Unknown]
  - Back injury [Unknown]
  - Pain in extremity [Unknown]
